FAERS Safety Report 5744063-X (Version None)
Quarter: 2008Q2

REPORT INFORMATION
  Report Type: 
  Country: None (occurrence: None)
  Receive Date: 20080520
  Receipt Date: 20080508
  Transmission Date: 20081010
  Serious: Yes (Disabling, Other)
  Sender: FDA-Public Use
  Company Number: DE-PURDUE-DEU_2008_0004282

PATIENT
  Age: 52 Year
  Sex: Female
  Weight: 60 kg

DRUGS (8)
  1. OXYGESIC 20 MG [Suspect]
     Indication: PAIN
     Dosage: 20 MG, TID
     Route: 048
     Dates: start: 20060814
  2. ESCITALOPRAM [Concomitant]
  3. CELEBREX [Concomitant]
  4. L-THYROXIN [Concomitant]
  5. ISOPTIN [Concomitant]
  6. NEXIUM [Concomitant]
  7. SYMBICORT [Concomitant]
  8. AARANE [Concomitant]

REACTIONS (14)
  - ABNORMAL DREAMS [None]
  - ANOREXIA [None]
  - BALANCE DISORDER [None]
  - BONE PAIN [None]
  - CRYING [None]
  - DIARRHOEA [None]
  - DIZZINESS [None]
  - FEELING ABNORMAL [None]
  - MYALGIA [None]
  - NAUSEA [None]
  - SLEEP DISORDER [None]
  - TREMOR [None]
  - VOMITING [None]
  - WEIGHT DECREASED [None]
